FAERS Safety Report 8779931 (Version 1)
Quarter: 2012Q4

REPORT INFORMATION
  Report Type: Spontaneous
  Country: US (occurrence: None)
  Receive Date: 20120905
  Receipt Date: 20120905
  Transmission Date: 20130627
  Serious: Yes (Life-Threatening, Hospitalization)
  Sender: FDA-Public Use
  Company Number: None

PATIENT
  Age: 18 Year
  Sex: Male
  Weight: 79.38 kg

DRUGS (1)
  1. TRAMADOL HCL [Suspect]
     Indication: LOW BACK PAIN
     Dosage: 1 tablet as needed 3 X
     Route: 048
     Dates: start: 20090415, end: 20120830

REACTIONS (12)
  - Feeling abnormal [None]
  - Muscle twitching [None]
  - Amnesia [None]
  - Contusion [None]
  - Heart rate increased [None]
  - Electrocardiogram abnormal [None]
  - Convulsion [None]
  - Impaired driving ability [None]
  - Aggression [None]
  - Panic disorder [None]
  - Dyspnoea [None]
  - Screaming [None]
